FAERS Safety Report 5096853-7 (Version None)
Quarter: 2006Q3

REPORT INFORMATION
  Report Type: 
  Country: None (occurrence: None)
  Receive Date: 20060901
  Receipt Date: 20060901
  Transmission Date: 20061208
  Serious: Yes (Other)
  Sender: FDA-Public Use
  Company Number: None

PATIENT
  Sex: Female

DRUGS (7)
  1. RITUXIMAB [Suspect]
     Indication: URTICARIA CHRONIC
     Dosage: 1000MG  IV DAYS 1 + 15
     Route: 042
     Dates: start: 20060418, end: 20060502
  2. PREDNISONE TAB [Concomitant]
  3. ZYRTEC [Concomitant]
  4. SINGULAIR [Concomitant]
  5. RANITIDINE [Concomitant]
  6. HYDROXYZINE [Concomitant]
  7. CYTOMEL [Concomitant]

REACTIONS (4)
  - GOITRE [None]
  - INFUSION RELATED REACTION [None]
  - PAPILLARY THYROID CANCER [None]
  - THYROID NEOPLASM [None]
